FAERS Safety Report 8429063-3 (Version None)
Quarter: 2012Q2

REPORT INFORMATION
  Report Type: 
  Country: None (occurrence: None)
  Receive Date: 20120612
  Receipt Date: 20120531
  Transmission Date: 20120825
  Serious: Yes (Other)
  Sender: FDA-Public Use
  Company Number: KR-JNJFOC-20120516217

PATIENT

DRUGS (3)
  1. MESALAMINE [Concomitant]
     Route: 065
  2. AZATHIOPRINE [Concomitant]
     Route: 065
  3. INFLIXIMAB, RECOMBINANT [Suspect]
     Indication: COLITIS ULCERATIVE
     Dosage: WEEK 0, 2 AND 6
     Route: 042

REACTIONS (2)
  - PNEUMOMEDIASTINUM [None]
  - LARGE INTESTINE PERFORATION [None]
